FAERS Safety Report 12518687 (Version 2)
Quarter: 2016Q3

REPORT INFORMATION
  Report Type: Report from Study
  Country: NL (occurrence: NL)
  Receive Date: 20160630
  Receipt Date: 20160705
  Transmission Date: 20161109
  Serious: Yes (Hospitalization, Other)
  Sender: FDA-Public Use
  Company Number: NL-IPSEN BIOPHARMACEUTICALS, INC.-2016-05613

PATIENT
  Age: 80 Year
  Sex: Female

DRUGS (1)
  1. SOMATULINE AUTOGEL [Suspect]
     Active Substance: LANREOTIDE ACETATE
     Indication: CARCINOID TUMOUR
     Dosage: 120 MILIGRAM
     Route: 058
     Dates: start: 20061106, end: 20160614

REACTIONS (2)
  - Ileus [Not Recovered/Not Resolved]
  - Hospice care [Not Recovered/Not Resolved]

NARRATIVE: CASE EVENT DATE: 20160619
